FAERS Safety Report 5186795-0 (Version None)
Quarter: 2006Q4

REPORT INFORMATION
  Report Type: 
  Country: None (occurrence: None)
  Receive Date: 20061213
  Receipt Date: 20061205
  Transmission Date: 20070319
  Serious: Yes (Other)
  Sender: FDA-Public Use
  Company Number: S06-USA-05110-01

PATIENT
  Age: 76 Year
  Sex: Male

DRUGS (7)
  1. CELEXA [Suspect]
     Indication: DEPRESSION
     Dosage: 10 MG QD PO
     Route: 048
     Dates: start: 20060901, end: 20060101
  2. CELEXA [Suspect]
     Indication: DEPRESSION
     Dosage: 20 MG QD PO
     Route: 048
     Dates: start: 20060101, end: 20060101
  3. MAXZIDE [Concomitant]
  4. TERAZOSIN HCL [Concomitant]
  5. LOVASTATIN [Concomitant]
  6. GLIPIZIDE [Concomitant]
  7. DILTIAZEM XT (DILTIAZEM HYDROCHLORIDE) [Concomitant]

REACTIONS (1)
  - PARKINSON'S DISEASE [None]
